FAERS Safety Report 6588911-2 (Version None)
Quarter: 2010Q1

REPORT INFORMATION
  Report Type: 
  Country: None (occurrence: None)
  Receive Date: 20100218
  Receipt Date: 20100212
  Transmission Date: 20100710
  Serious: Yes (Hospitalization)
  Sender: FDA-Public Use
  Company Number: IT-BRISTOL-MYERS SQUIBB COMPANY-14954424

PATIENT
  Age: 65 Year
  Sex: Male

DRUGS (4)
  1. SPRYCEL [Suspect]
     Indication: CHRONIC MYELOID LEUKAEMIA
     Dosage: INTERRUPTED ON 16OCT09
     Dates: start: 20090710
  2. TRIATEC [Concomitant]
  3. MODURETIC 5-50 [Concomitant]
     Dosage: 1DF-1/2 POSOLOGIC UNITS
     Dates: start: 20080101, end: 20100118
  4. DELTACORTENE [Concomitant]
     Dosage: DELTACORTENE 25MG TABS
     Route: 048
     Dates: start: 20091220, end: 20100116

REACTIONS (2)
  - ATRIAL FIBRILLATION [None]
  - HYPOKALAEMIA [None]
